FAERS Safety Report 17130660 (Version 1)
Quarter: 2019Q4

REPORT INFORMATION
  Report Type: Spontaneous
  Country: FR (occurrence: FR)
  Receive Date: 20191209
  Receipt Date: 20191209
  Transmission Date: 20200122
  Serious: Yes (Death)
  Sender: FDA-Public Use
  Company Number: FR-ADHERA THERAPEUTICS, INC.-2019ADHERA000607

PATIENT

DRUGS (1)
  1. COVERAM [Suspect]
     Active Substance: AMLODIPINE\PERINDOPRIL
     Indication: HYPERTENSION
     Dosage: 1 (5MG/10MG) TABLET, QD
     Route: 048
     Dates: start: 2017, end: 20191107

REACTIONS (2)
  - Hanging [Fatal]
  - Completed suicide [Fatal]

NARRATIVE: CASE EVENT DATE: 20191107
